FAERS Safety Report 4703532-1 (Version None)
Quarter: 2005Q2

REPORT INFORMATION
  Report Type: 
  Country: None (occurrence: None)
  Receive Date: 20050628
  Receipt Date: 20050616
  Transmission Date: 20051028
  Serious: Yes (Hospitalization, Other)
  Sender: FDA-Public Use
  Company Number: 2005059018

PATIENT
  Age: 72 Year
  Sex: Female

DRUGS (10)
  1. CELEBREX [Suspect]
     Indication: OSTEOARTHRITIS
     Dosage: 200 MG (200 MG, 1 IN 1 D), ORAL
     Route: 048
     Dates: start: 20041001, end: 20050201
  2. ZIAC (BISOPROLO FUMARATE, HYDROCHLOROTHIAZIDE) [Concomitant]
  3. KLONOPIN [Concomitant]
  4. URSODIOL (URSODEXOYCHOLIC ACID) [Concomitant]
  5. ALTACE [Concomitant]
  6. BENZONATATE [Concomitant]
  7. ZYPREXA [Concomitant]
  8. CLONAZEPAM [Concomitant]
  9. DARVOCET-N 100 [Concomitant]
  10. CLARINEX [Concomitant]

REACTIONS (9)
  - ARTHRITIS [None]
  - CHOLELITHIASIS [None]
  - DIFFICULTY IN WALKING [None]
  - DRUG INEFFECTIVE [None]
  - MALAISE [None]
  - MOVEMENT DISORDER [None]
  - PAIN [None]
  - PANCREATITIS [None]
  - WEIGHT DECREASED [None]
